FAERS Safety Report 19776567 (Version 1)
Quarter: 2021Q3

REPORT INFORMATION
  Report Type: Spontaneous
  Country: SI (occurrence: SI)
  Receive Date: 20210901
  Receipt Date: 20210901
  Transmission Date: 20211014
  Serious: Yes (Death, Hospitalization, Other)
  Sender: FDA-Public Use
  Company Number: SI-MYLANLABS-2021M1057556

PATIENT
  Age: 45 Year
  Sex: Female

DRUGS (8)
  1. DOCETAXEL. [Suspect]
     Active Substance: DOCETAXEL
     Indication: BREAST CANCER METASTATIC
     Dosage: UNK
     Dates: end: 201603
  2. PACLITAXEL. [Suspect]
     Active Substance: PACLITAXEL
     Indication: BREAST CANCER METASTATIC
     Dosage: 1ST LINE
  3. TRASTUZUMAB. [Suspect]
     Active Substance: TRASTUZUMAB
     Indication: BREAST CANCER METASTATIC
     Dosage: UNK
  4. PERTUZUMAB. [Suspect]
     Active Substance: PERTUZUMAB
     Indication: BREAST CANCER METASTATIC
     Dosage: 1ST LINE
  5. TRASTUZUMAB. [Suspect]
     Active Substance: TRASTUZUMAB
     Dosage: UNK
     Dates: end: 201603
  6. DOCETAXEL. [Suspect]
     Active Substance: DOCETAXEL
     Dosage: 3RD LINE
     Dates: start: 201905
  7. CAPECITABINE. [Suspect]
     Active Substance: CAPECITABINE
     Indication: PRODUCT USED FOR UNKNOWN INDICATION
     Dosage: 3RD LINE, 1000MG/M2
     Dates: start: 20190626
  8. DOCETAXEL. [Suspect]
     Active Substance: DOCETAXEL
     Dosage: 1ST LINE
     Dates: start: 2018

REACTIONS (7)
  - Epilepsy [Unknown]
  - Paronychia [Unknown]
  - Laryngeal oedema [Not Recovered/Not Resolved]
  - Diarrhoea [Unknown]
  - Breast cancer metastatic [Fatal]
  - Neoplasm progression [Not Recovered/Not Resolved]
  - Cough [Unknown]

NARRATIVE: CASE EVENT DATE: 201810
